FAERS Safety Report 7477601-X (Version None)
Quarter: 2011Q2

REPORT INFORMATION
  Report Type: 
  Country: None (occurrence: None)
  Receive Date: 20110511
  Receipt Date: 20110511
  Transmission Date: 20111010
  Serious: Yes (Other)
  Sender: FDA-Public Use
  Company Number: None

PATIENT
  Age: 77 Year
  Sex: Male
  Weight: 66.9056 kg

DRUGS (2)
  1. HYDROCHLOROTHIAZIDE [Suspect]
     Indication: HYPERTENSION
     Dosage: ONE DAILY PO
     Route: 048
     Dates: start: 20110429, end: 20110508
  2. HYDROCHLOROTHIAZIDE [Suspect]
     Indication: OEDEMA
     Dosage: ONE DAILY PO
     Route: 048
     Dates: start: 20110429, end: 20110508

REACTIONS (1)
  - RASH [None]
